FAERS Safety Report 15292223 (Version 1)
Quarter: 2018Q3

REPORT INFORMATION
  Report Type: Spontaneous
  Country: US (occurrence: US)
  Receive Date: 20180806
  Receipt Date: 20180806
  Transmission Date: 20181010
  Serious: Yes (Disabling)
  Sender: FDA-Public Use
  Company Number: None

PATIENT
  Age: 58 Year
  Sex: Female
  Weight: 48.6 kg

DRUGS (8)
  1. ESTRACE [Concomitant]
     Active Substance: ESTRADIOL
  2. MAGNESIUM [Concomitant]
     Active Substance: MAGNESIUM
  3. MULTI?VITAMIN [Concomitant]
     Active Substance: .ALPHA.-TOCOPHEROL ACETATE, DL-\ASCORBIC ACID\CYANOCOBALAMIN\FLUORIDE ION\FOLIC ACID\NIACIN\PYRIDOXINE\RIBOFLAVIN\THIAMINE\VITAMIN A\VITAMIN D
  4. LEVOTHYROXIN [Concomitant]
     Active Substance: LEVOTHYROXINE
  5. IBUPROFEN. [Concomitant]
     Active Substance: IBUPROFEN
  6. PROBIOTICS [Concomitant]
     Active Substance: PROBIOTICS NOS
  7. AIMOVIG [Suspect]
     Active Substance: ERENUMAB-AOOE
     Indication: MIGRAINE
     Dosage: ?          QUANTITY:1 INJECTION(S);OTHER FREQUENCY:1X/MONTH;?
     Route: 058
     Dates: start: 20180731, end: 20180731
  8. L?TRYTOPHAN [Concomitant]

REACTIONS (14)
  - Loss of personal independence in daily activities [None]
  - Constipation [None]
  - Fatigue [None]
  - Decreased appetite [None]
  - Dizziness [None]
  - Balance disorder [None]
  - Thinking abnormal [None]
  - Impaired driving ability [None]
  - Disturbance in attention [None]
  - Feeling abnormal [None]
  - Influenza like illness [None]
  - Abdominal pain upper [None]
  - Migraine [None]
  - Visual impairment [None]

NARRATIVE: CASE EVENT DATE: 20180731
